FAERS Safety Report 21333381 (Version 1)
Quarter: 2022Q3

REPORT INFORMATION
  Report Type: Spontaneous
  Country: ZA (occurrence: ZA)
  Receive Date: 20220914
  Receipt Date: 20220914
  Transmission Date: 20221026
  Serious: Yes (Life-Threatening, Hospitalization)
  Sender: FDA-Public Use
  Company Number: ZA-BoehringerIngelheim-2022-BI-190655

PATIENT
  Age: 50 Year
  Sex: Male

DRUGS (2)
  1. ALTEPLASE [Suspect]
     Active Substance: ALTEPLASE
     Indication: Ischaemic stroke
     Dosage: 09.MG /KG BODY WEIGHT WITH A 10% BOLUS
     Route: 065
     Dates: start: 20220814
  2. ALTEPLASE [Suspect]
     Active Substance: ALTEPLASE
     Dosage: 90% INFUSION
     Route: 065

REACTIONS (3)
  - Seizure [Not Recovered/Not Resolved]
  - Agitation [Not Recovered/Not Resolved]
  - Confusional state [Not Recovered/Not Resolved]
